FAERS Safety Report 6169194-4 (Version None)
Quarter: 2009Q2

REPORT INFORMATION
  Report Type: 
  Country: None (occurrence: None)
  Receive Date: 20090424
  Receipt Date: 20090222
  Transmission Date: 20091009
  Serious: No
  Sender: FDA-Public Use
  Company Number: ALL1-2009-00480

PATIENT
  Age: 6 Year
  Sex: Male
  Weight: 13.6 kg

DRUGS (2)
  1. VYVANSE [Suspect]
     Indication: ATTENTION DEFICIT/HYPERACTIVITY DISORDER
     Dosage: 30 MG, 1X/DAY QD, ORAL; 30 MG, 1X/DAY QD, ORAL
     Route: 048
     Dates: start: 20090217, end: 20090217
  2. VYVANSE [Suspect]
     Indication: ATTENTION DEFICIT/HYPERACTIVITY DISORDER
     Dosage: 30 MG, 1X/DAY QD, ORAL; 30 MG, 1X/DAY QD, ORAL
     Route: 048
     Dates: start: 20090222, end: 20090222

REACTIONS (3)
  - NASOPHARYNGITIS [None]
  - NAUSEA [None]
  - VOMITING [None]
